FAERS Safety Report 10023208 (Version 1)
Quarter: 2014Q1

REPORT INFORMATION
  Report Type: Spontaneous
  Country: US (occurrence: US)
  Receive Date: 20140320
  Receipt Date: 20140320
  Transmission Date: 20141002
  Serious: No
  Sender: FDA-Public Use
  Company Number: US-BIOGENIDEC-2014BI024093

PATIENT
  Sex: Female

DRUGS (1)
  1. TYSABRI [Suspect]
     Indication: MULTIPLE SCLEROSIS
     Route: 042
     Dates: start: 20110729

REACTIONS (3)
  - Inappropriate affect [Recovered/Resolved with Sequelae]
  - Crying [Recovered/Resolved with Sequelae]
  - Malaise [Recovered/Resolved with Sequelae]
